FAERS Safety Report 19149627 (Version 1)
Quarter: 2021Q2

REPORT INFORMATION
  Report Type: Other
  Country: ES (occurrence: ES)
  Receive Date: 20210417
  Receipt Date: 20210417
  Transmission Date: 20210717
  Serious: Yes (Life-Threatening)
  Sender: FDA-Public Use
  Company Number: ES-CADILA HEALTHCARE LIMITED-ES-ZYDUS-064643

PATIENT

DRUGS (4)
  1. TORASEMIDA NORMON [Concomitant]
     Indication: PERIPHERAL VENOUS DISEASE
     Dosage: 2.5 MILLIGRAM, QD
     Route: 048
     Dates: start: 20120725
  2. ATORVASTATIN [Suspect]
     Active Substance: ATORVASTATIN
     Indication: HYPERLIPIDAEMIA
     Dosage: UNK
     Route: 048
     Dates: start: 20210320, end: 20210326
  3. LORATADINA CINFA [Concomitant]
     Indication: HYPERSENSITIVITY
     Dosage: UNK
  4. LORAZEPAM CINFA [Concomitant]
     Active Substance: LORAZEPAM
     Indication: INSOMNIA
     Dosage: 1 MILLIGRAM
     Route: 048
     Dates: start: 20100901

REACTIONS (3)
  - Throat irritation [Recovered/Resolved]
  - Tongue oedema [Recovered/Resolved]
  - Oropharyngeal pain [Recovered/Resolved]

NARRATIVE: CASE EVENT DATE: 20210320
